FAERS Safety Report 16011968 (Version 1)
Quarter: 2019Q1

REPORT INFORMATION
  Report Type: Spontaneous
  Country: JP (occurrence: JP)
  Receive Date: 20190227
  Receipt Date: 20190227
  Transmission Date: 20190418
  Serious: Yes (Hospitalization, Other)
  Sender: FDA-Public Use
  Company Number: JP-ELI_LILLY_AND_COMPANY-JP201902011361

PATIENT
  Age: 58 Year
  Sex: Female

DRUGS (6)
  1. DULOXETINE HYDROCHLORIDE. [Suspect]
     Active Substance: DULOXETINE HYDROCHLORIDE
     Indication: DIABETIC NEUROPATHY
     Route: 048
  2. CODEINE PHOSPHATE [Concomitant]
     Active Substance: CODEINE PHOSPHATE
     Indication: DIABETIC NEUROPATHY
  3. PREGABALIN. [Concomitant]
     Active Substance: PREGABALIN
     Indication: DIABETIC NEUROPATHY
  4. AMITRIPTYLINE [Suspect]
     Active Substance: AMITRIPTYLINE
     Indication: DIABETIC NEUROPATHY
     Route: 048
  5. TRAMADOL. [Suspect]
     Active Substance: TRAMADOL
     Indication: DIABETIC NEUROPATHY
     Dosage: 200 MG, DAILY
     Route: 048
  6. TRAMADOL. [Suspect]
     Active Substance: TRAMADOL
     Dosage: 25 MG, PRN

REACTIONS (5)
  - Hypoaesthesia [Unknown]
  - Altered state of consciousness [Recovered/Resolved]
  - Intentional overdose [Unknown]
  - Cerebral infarction [Unknown]
  - Product dose omission [Unknown]
